FAERS Safety Report 20854621 (Version 1)
Quarter: 2022Q2

REPORT INFORMATION
  Report Type: Other
  Country: AU (occurrence: None)
  Receive Date: 20220520
  Receipt Date: 20220520
  Transmission Date: 20220721
  Serious: Yes (Death, Hospitalization)
  Sender: FDA-Public Use
  Company Number: AU-ROCHE-3100150

PATIENT
  Age: 67 Year
  Sex: Female

DRUGS (10)
  1. ATEZOLIZUMAB [Suspect]
     Active Substance: ATEZOLIZUMAB
     Indication: Lung adenocarcinoma
     Route: 065
  2. CARBOPLATIN [Suspect]
     Active Substance: CARBOPLATIN
     Indication: Lung adenocarcinoma
     Route: 065
  3. PACLITAXEL [Suspect]
     Active Substance: PACLITAXEL
     Indication: Lung adenocarcinoma
     Route: 065
  4. BEVACIZUMAB [Suspect]
     Active Substance: BEVACIZUMAB
     Indication: Lung adenocarcinoma
     Route: 065
  5. ANASTROZOLE [Concomitant]
     Active Substance: ANASTROZOLE
  6. RIVAROXABAN [Concomitant]
     Active Substance: RIVAROXABAN
  7. PREGABALIN [Concomitant]
     Active Substance: PREGABALIN
  8. CALCIUM [Concomitant]
     Active Substance: CALCIUM
  9. GEFITINIB [Concomitant]
     Active Substance: GEFITINIB
     Indication: Lung adenocarcinoma
  10. OSIMERTINIB [Concomitant]
     Active Substance: OSIMERTINIB
     Indication: Lung adenocarcinoma

REACTIONS (5)
  - Myasthenia gravis crisis [Fatal]
  - Respiratory failure [Fatal]
  - Hypertransaminasaemia [Unknown]
  - Myasthenia gravis [Unknown]
  - Conduction disorder [Unknown]
